FAERS Safety Report 25967167 (Version 1)
Quarter: 2025Q4

REPORT INFORMATION
  Report Type: Spontaneous
  Country: EU (occurrence: EU)
  Receive Date: 20251028
  Receipt Date: 20251028
  Transmission Date: 20260117
  Serious: Yes (Hospitalization)
  Sender: ASTELLAS
  Company Number: EU-ASTELLAS-2025-AER-058561

PATIENT
  Age: 79 Year

DRUGS (1)
  1. PADCEV [Suspect]
     Active Substance: ENFORTUMAB VEDOTIN-EJFV
     Indication: Bladder transitional cell carcinoma
     Dosage: 3RD LINE THERAPY
     Route: 065
     Dates: start: 20241106

REACTIONS (6)
  - Pulmonary embolism [Unknown]
  - Blood urine present [Unknown]
  - Blood creatinine abnormal [Unknown]
  - Abdominal pain [Unknown]
  - Dehydration [Unknown]
  - Asthenia [Unknown]
